FAERS Safety Report 5412111-2 (Version None)
Quarter: 2007Q3

REPORT INFORMATION
  Report Type: 
  Country: None (occurrence: None)
  Receive Date: 20070813
  Receipt Date: 20070807
  Transmission Date: 20080115
  Serious: Yes (Other)
  Sender: FDA-Public Use
  Company Number: JP-AVENTIS-200710703JP

PATIENT
  Age: 65 Year
  Sex: Female
  Weight: 45.6 kg

DRUGS (1)
  1. RILUTEK [Suspect]
     Indication: AMYOTROPHIC LATERAL SCLEROSIS
     Route: 048
     Dates: start: 20060821, end: 20060906

REACTIONS (2)
  - BLOOD BILIRUBIN INCREASED [None]
  - INTERSTITIAL LUNG DISEASE [None]
